FAERS Safety Report 15437055 (Version 2)
Quarter: 2018Q4

REPORT INFORMATION
  Report Type: Report from Study
  Country: US (occurrence: US)
  Receive Date: 20180927
  Receipt Date: 20181231
  Transmission Date: 20190204
  Serious: No
  Sender: FDA-Public Use
  Company Number: US-CLOVIS ONCOLOGY-CLO-2018-000761

PATIENT
  Age: 64 Year
  Sex: Female

DRUGS (2)
  1. RUBRACA [Suspect]
     Active Substance: RUCAPARIB CAMSYLATE
     Dosage: 600 MG - 21 ON, 7 OFF
     Route: 048
     Dates: start: 20180531
  2. RUBRACA [Suspect]
     Active Substance: RUCAPARIB CAMSYLATE
     Indication: OVARIAN CANCER
     Dosage: 600 MG, BID
     Route: 048
     Dates: start: 20180531

REACTIONS (20)
  - International normalised ratio increased [Unknown]
  - Depressed mood [Not Recovered/Not Resolved]
  - Insomnia [Unknown]
  - Arthralgia [Not Recovered/Not Resolved]
  - Photosensitivity reaction [Unknown]
  - Rhinorrhoea [Unknown]
  - Tremor [Not Recovered/Not Resolved]
  - Weight decreased [Unknown]
  - Nasopharyngitis [Unknown]
  - Nausea [Not Recovered/Not Resolved]
  - Product dose omission [Unknown]
  - Anxiety [Not Recovered/Not Resolved]
  - Hypophagia [Unknown]
  - Hyperhidrosis [Unknown]
  - Physical deconditioning [Unknown]
  - Fatigue [Not Recovered/Not Resolved]
  - Hypersomnia [Unknown]
  - Dysgeusia [Not Recovered/Not Resolved]
  - Sunburn [Unknown]
  - Red blood cell count decreased [Unknown]

NARRATIVE: CASE EVENT DATE: 2018
